FAERS Safety Report 25156665 (Version 2)
Quarter: 2025Q2

REPORT INFORMATION
  Report Type: Spontaneous
  Country: DE (occurrence: DE)
  Receive Date: 20250403
  Receipt Date: 20250424
  Transmission Date: 20250717
  Serious: Yes (Other)
  Sender: ALNYLAM PHARMACEUTICALS
  Company Number: DE-ALNYLAM PHARMACEUTICALS, INC.-ALN-2025-002135

PATIENT

DRUGS (2)
  1. OXLUMO [Suspect]
     Active Substance: LUMASIRAN
     Indication: Product used for unknown indication
     Route: 065
  2. NEDOSIRAN [Suspect]
     Active Substance: NEDOSIRAN
     Indication: Product used for unknown indication
     Route: 065

REACTIONS (3)
  - Oxalosis [Unknown]
  - Febrile infection [Unknown]
  - Hyperoxalaemia [Unknown]
